FAERS Safety Report 7826583-7 (Version None)
Quarter: 2011Q4

REPORT INFORMATION
  Report Type: 
  Country: None (occurrence: None)
  Receive Date: 20111020
  Receipt Date: 20111010
  Transmission Date: 20120403
  Serious: Yes (Hospitalization)
  Sender: FDA-Public Use
  Company Number: LT-ELI_LILLY_AND_COMPANY-LT201110002604

PATIENT
  Age: 22 Year
  Sex: Male

DRUGS (5)
  1. ZYPREXA [Suspect]
     Dosage: 15 MG, UNK
  2. OLANZAPINE [Suspect]
     Indication: SCHIZOPHRENIA
     Dosage: 405 MG, EVERY 4 WEEKS
     Route: 030
     Dates: start: 20110707, end: 20111007
  3. CARBAMAZEPINE [Concomitant]
     Dosage: 200 MG, UNK
     Route: 048
     Dates: start: 20110606
  4. LORAFEN [Concomitant]
     Dosage: 2.5 X 2 (UNITS AND FREQUENCY NOT SPECIFIED)
     Route: 048
     Dates: start: 20110601
  5. ZYPREXA [Suspect]
     Indication: SCHIZOPHRENIA
     Dosage: 10 MG, QD

REACTIONS (8)
  - AGITATION [None]
  - FEELING ABNORMAL [None]
  - CONVULSION [None]
  - SOMNOLENCE [None]
  - COMA [None]
  - DISORIENTATION [None]
  - SCHIZOPHRENIA [None]
  - SEDATION [None]
